FAERS Safety Report 5906131-9 (Version None)
Quarter: 2008Q4

REPORT INFORMATION
  Report Type: 
  Country: None (occurrence: None)
  Receive Date: 20081002
  Receipt Date: 20080925
  Transmission Date: 20090506
  Serious: Yes (Hospitalization)
  Sender: FDA-Public Use
  Company Number: PHHY2008GT22734

PATIENT
  Age: 78 Year
  Sex: Female

DRUGS (5)
  1. ACLASTA [Suspect]
     Indication: BACK PAIN
     Dosage: UNK
     Route: 051
     Dates: start: 20080913
  2. ACLASTA [Suspect]
     Indication: SPINAL FRACTURE
  3. VALDURE [Concomitant]
     Dosage: UNK
     Dates: start: 20080913
  4. LACTATED RINGER'S [Concomitant]
  5. DEXTROSE [Concomitant]

REACTIONS (5)
  - ABDOMINAL PAIN [None]
  - COLECTOMY [None]
  - GENERAL PHYSICAL HEALTH DETERIORATION [None]
  - NECROSIS [None]
  - VOLVULUS [None]
